FAERS Safety Report 19544533 (Version 1)
Quarter: 2021Q3

REPORT INFORMATION
  Report Type: Spontaneous
  Country: US (occurrence: US)
  Receive Date: 20210713
  Receipt Date: 20210713
  Transmission Date: 20211014
  Serious: No
  Sender: FDA-Public Use
  Company Number: US-PFIZER INC-2021167584

PATIENT
  Age: 76 Year
  Sex: Male

DRUGS (2)
  1. TOZINAMERAN. [Suspect]
     Active Substance: TOZINAMERAN
     Indication: COVID-19 IMMUNISATION
     Dosage: DOSE 1, SINGLE
     Dates: start: 20210212, end: 20210212
  2. CEFEPIME HCL [Suspect]
     Active Substance: CEFEPIME HYDROCHLORIDE
     Dosage: 100 MG, UNK

REACTIONS (4)
  - Disorientation [Unknown]
  - Erythema [Unknown]
  - Chills [Unknown]
  - Pain [Unknown]

NARRATIVE: CASE EVENT DATE: 20210213
